FAERS Safety Report 8609060-5 (Version None)
Quarter: 2012Q3

REPORT INFORMATION
  Report Type: 
  Country: None (occurrence: None)
  Receive Date: 20120821
  Receipt Date: 19900521
  Transmission Date: 20120928
  Serious: Yes (Death, Hospitalization, Other)
  Sender: FDA-Public Use
  Company Number: US-ROCHE-1097943

PATIENT
  Age: 55 Year
  Sex: Female

DRUGS (2)
  1. ACTIVASE [Suspect]
     Indication: MYOCARDIAL INFARCTION
  2. ACTIVASE [Suspect]

REACTIONS (13)
  - CHEST DISCOMFORT [None]
  - ATRIOVENTRICULAR BLOCK COMPLETE [None]
  - HYPONATRAEMIA [None]
  - VENTRICULAR TACHYCARDIA [None]
  - DIZZINESS [None]
  - ANGINA PECTORIS [None]
  - NAUSEA [None]
  - VENTRICULAR FIBRILLATION [None]
  - BLOOD CREATINE PHOSPHOKINASE INCREASED [None]
  - PALPITATIONS [None]
  - HYPOTENSION [None]
  - CARDIOGENIC SHOCK [None]
  - ATRIOVENTRICULAR BLOCK SECOND DEGREE [None]
